FAERS Safety Report 15152224 (Version 1)
Quarter: 2018Q3

REPORT INFORMATION
  Report Type: Spontaneous
  Country: FR (occurrence: FR)
  Receive Date: 20180717
  Receipt Date: 20180717
  Transmission Date: 20181010
  Serious: Yes (Other)
  Sender: FDA-Public Use
  Company Number: FR-TEVA-2018-FR-927216

PATIENT
  Age: 79 Year
  Sex: Male

DRUGS (1)
  1. CHLORHYDRATE DE NEBIVOLOL [Suspect]
     Active Substance: NEBIVOLOL HYDROCHLORIDE
     Indication: CARDIAC DISORDER
     Dosage: 1.25 MILLIGRAM DAILY;
     Route: 048
     Dates: start: 201802, end: 201802

REACTIONS (2)
  - Tremor [Recovered/Resolved]
  - Disturbance in attention [Recovered/Resolved]

NARRATIVE: CASE EVENT DATE: 201802
